FAERS Safety Report 9077048 (Version 1)
Quarter: 2013Q1

REPORT INFORMATION
  Report Type: Spontaneous
  Country: SE (occurrence: SE)
  Receive Date: 20130130
  Receipt Date: 20130130
  Transmission Date: 20140127
  Serious: Yes (Other)
  Sender: FDA-Public Use
  Company Number: SE-JNJFOC-20130107536

PATIENT
  Sex: Female

DRUGS (4)
  1. XEPLION [Suspect]
     Indication: SCHIZOPHRENIA
     Dosage: PATIENT HAD RECEIVED 3 INJECTIONS
     Route: 030
     Dates: start: 20120725, end: 20120927
  2. ATARAX [Concomitant]
     Route: 065
  3. TRILAFON [Concomitant]
     Route: 065
  4. STESOLID [Concomitant]
     Route: 065

REACTIONS (4)
  - Toxic skin eruption [Not Recovered/Not Resolved]
  - Eczema [Not Recovered/Not Resolved]
  - Hypersensitivity [Not Recovered/Not Resolved]
  - Pruritus [Not Recovered/Not Resolved]
